FAERS Safety Report 23858671 (Version 1)
Quarter: 2024Q2

REPORT INFORMATION
  Report Type: Spontaneous
  Country: CN (occurrence: CN)
  Receive Date: 20240515
  Receipt Date: 20240515
  Transmission Date: 20240715
  Serious: Yes (Other)
  Sender: FDA-Public Use
  Company Number: CN-ORGANON-O2405CHN000947

PATIENT
  Age: 34 Year
  Sex: Female
  Weight: 57 kg

DRUGS (5)
  1. ORGALUTRAN [Suspect]
     Active Substance: GANIRELIX ACETATE
     Indication: Superovulation
     Dosage: 0.25 MILLILITER, QD
     Route: 058
     Dates: start: 20240408, end: 20240414
  2. UROFOLLITROPIN [Suspect]
     Active Substance: UROFOLLITROPIN
     Indication: Superovulation
     Dosage: 300 IU INTERNATIONAL UNIT(S), QD
     Route: 030
     Dates: start: 20240403, end: 20240414
  3. CHORIONIC GONADOTROPHIN [Suspect]
     Active Substance: CHORIOGONADOTROPIN ALFA
     Indication: Superovulation
     Dosage: 10000 IU INTERNATIONAL UNIT(S), QD
     Route: 030
     Dates: start: 20240414, end: 20240414
  4. SODIUM CHLORIDE [Concomitant]
     Active Substance: SODIUM CHLORIDE
     Dosage: 2 MILLILITER, QD ((0.9%, 10 ML)
     Route: 030
     Dates: start: 20240403, end: 20240414
  5. SODIUM CHLORIDE [Concomitant]
     Active Substance: SODIUM CHLORIDE
     Dosage: 2 MILLILITER, QD (0.9%, 10ML)
     Route: 030
     Dates: start: 20240414, end: 20240414

REACTIONS (4)
  - Ovarian hyperstimulation syndrome [Recovering/Resolving]
  - Abdominal distension [Recovering/Resolving]
  - Abdominal pain [Recovering/Resolving]
  - Chest discomfort [Recovering/Resolving]

NARRATIVE: CASE EVENT DATE: 20240421
